FAERS Safety Report 18563400 (Version 1)
Quarter: 2020Q4

REPORT INFORMATION
  Report Type: Spontaneous
  Country: SE (occurrence: SE)
  Receive Date: 20201201
  Receipt Date: 20201201
  Transmission Date: 20210114
  Serious: Yes (Other)
  Sender: FDA-Public Use
  Company Number: SE-TEVA-2020-SE-1853378

PATIENT
  Age: 17 Year
  Sex: Male

DRUGS (2)
  1. RISPERIDONE. [Suspect]
     Active Substance: RISPERIDONE
     Indication: PSYCHOTIC DISORDER
     Dosage: 1+1,5 MG
     Dates: start: 2019
  2. AKINETON [Concomitant]
     Active Substance: BIPERIDEN HYDROCHLORIDE

REACTIONS (3)
  - Lipids increased [Unknown]
  - Hyperprolactinaemia [Unknown]
  - Weight increased [Unknown]

NARRATIVE: CASE EVENT DATE: 2019
